FAERS Safety Report 18698335 (Version 2)
Quarter: 2021Q1

REPORT INFORMATION
  Report Type: Other
  Country: QA (occurrence: QA)
  Receive Date: 20210105
  Receipt Date: 20210317
  Transmission Date: 20210419
  Serious: Yes (Death, Other)
  Sender: FDA-Public Use
  Company Number: QA-ROCHE-2743182

PATIENT
  Age: 60 Year
  Sex: Male

DRUGS (4)
  1. TOCILIZUMAB. [Suspect]
     Active Substance: TOCILIZUMAB
     Indication: COVID-19
     Route: 065
  2. HYDROCORTISONE. [Suspect]
     Active Substance: HYDROCORTISONE
     Indication: COVID-19
     Route: 065
  3. METHYLPREDNISOLONE. [Suspect]
     Active Substance: METHYLPREDNISOLONE
     Indication: COVID-19
     Route: 065
  4. TOCILIZUMAB. [Suspect]
     Active Substance: TOCILIZUMAB
     Indication: CYTOKINE STORM
     Dosage: 2 DOSES
     Route: 065

REACTIONS (5)
  - Cryptococcal fungaemia [Fatal]
  - Candida infection [Unknown]
  - Off label use [Unknown]
  - Sepsis [Fatal]
  - Systemic candida [Unknown]
